FAERS Safety Report 7251847-8 (Version None)
Quarter: 2011Q1

REPORT INFORMATION
  Report Type: 
  Country: None (occurrence: None)
  Receive Date: 20110128
  Receipt Date: 20100108
  Transmission Date: 20110831
  Serious: No
  Sender: FDA-Public Use
  Company Number: US-ABBOTT-10P-163-0618217-00

PATIENT
  Sex: Male
  Weight: 63.56 kg

DRUGS (1)
  1. HUMIRA [Suspect]
     Indication: CROHN'S DISEASE

REACTIONS (5)
  - VITREOUS FLOATERS [None]
  - EYE DISORDER [None]
  - VISION BLURRED [None]
  - PHOTOPSIA [None]
  - INTRAOCULAR PRESSURE INCREASED [None]
